FAERS Safety Report 12983322 (Version 3)
Quarter: 2016Q4

REPORT INFORMATION
  Report Type: Report from Study
  Country: GB (occurrence: GB)
  Receive Date: 20161129
  Receipt Date: 20161213
  Transmission Date: 20170207
  Serious: Yes (Hospitalization, Disabling)
  Sender: FDA-Public Use
  Company Number: GB-JNJFOC-20150615185

PATIENT
  Age: 77 Year
  Sex: Male
  Weight: 87.6 kg

DRUGS (10)
  1. ABIRATERONE ACETATE [Suspect]
     Active Substance: ABIRATERONE ACETATE
     Indication: PROSTATE CANCER METASTATIC
     Route: 048
     Dates: start: 20140910, end: 20150715
  2. WARFARIN [Concomitant]
     Active Substance: WARFARIN
     Route: 048
     Dates: start: 20150616
  3. FUROSEMIDE. [Concomitant]
     Active Substance: FUROSEMIDE
     Route: 048
     Dates: start: 20150716
  4. AMLODIPINE [Concomitant]
     Active Substance: AMLODIPINE BESYLATE
     Indication: PRODUCT USED FOR UNKNOWN INDICATION
     Route: 048
     Dates: start: 2006, end: 20150617
  5. PREDNISOLONE. [Suspect]
     Active Substance: PREDNISOLONE
     Indication: PROSTATE CANCER
     Route: 048
     Dates: start: 20140910, end: 20150715
  6. ABIRATERONE ACETATE [Suspect]
     Active Substance: ABIRATERONE ACETATE
     Route: 048
  7. FUROSEMIDE. [Concomitant]
     Active Substance: FUROSEMIDE
     Route: 048
     Dates: start: 20150519
  8. ZOLADEX [Concomitant]
     Active Substance: GOSERELIN ACETATE
     Indication: PRODUCT USED FOR UNKNOWN INDICATION
     Route: 058
     Dates: start: 20140714
  9. BENDROFLUMETHIAZIDE [Concomitant]
     Active Substance: BENDROFLUMETHIAZIDE
     Route: 048
     Dates: start: 2006, end: 20141126
  10. BISOPROLOL [Concomitant]
     Active Substance: BISOPROLOL
     Route: 048
     Dates: start: 20150616

REACTIONS (2)
  - Atrial fibrillation [Recovered/Resolved]
  - Mitral valve incompetence [Recovering/Resolving]

NARRATIVE: CASE EVENT DATE: 20150616
